FAERS Safety Report 23667305 (Version 2)
Quarter: 2024Q1

REPORT INFORMATION
  Report Type: Spontaneous
  Country: US (occurrence: US)
  Receive Date: 20240325
  Receipt Date: 20240328
  Transmission Date: 20240410
  Serious: No
  Sender: FDA-Public Use
  Company Number: US-AMGEN-USASP2024059071

PATIENT
  Age: 48 Year
  Sex: Female

DRUGS (12)
  1. OTEZLA [Suspect]
     Active Substance: APREMILAST
     Indication: Psoriasis
     Dosage: 30 MILLIGRAM, BID
     Route: 048
     Dates: start: 20230902, end: 20240320
  2. ARIPIPRAZOLE [Concomitant]
     Active Substance: ARIPIPRAZOLE
     Dosage: 2 MILLIGRAM
  3. BACLOFEN [Concomitant]
     Active Substance: BACLOFEN
     Dosage: 20 MILLIGRAM
  4. CLOBETASOL [Concomitant]
     Active Substance: CLOBETASOL
  5. DONEPEZIL [Concomitant]
     Active Substance: DONEPEZIL
     Dosage: 5 MILLIGRAM
  6. DULOXETINE [Concomitant]
     Active Substance: DULOXETINE
     Dosage: 20 MILLIGRAM
  7. JANUVIA [Concomitant]
     Active Substance: SITAGLIPTIN PHOSPHATE
     Dosage: 50 MILLIGRAM
  8. LEVETIRACETAM [Concomitant]
     Active Substance: LEVETIRACETAM
     Dosage: 1000 MILLIGRAM
  9. PANTOPRAZOLE SODIUM [Concomitant]
     Active Substance: PANTOPRAZOLE SODIUM
     Dosage: 40 MILLIGRAM
  10. QUETIAPINE [Concomitant]
     Active Substance: QUETIAPINE
     Dosage: 50 MILLIGRAM
  11. TOPIRAMATE [Concomitant]
     Active Substance: TOPIRAMATE
     Dosage: 25 MILLIGRAM
  12. VITAMIN D [Concomitant]
     Active Substance: VITAMIN D NOS
     Dosage: 50000 UNIT

REACTIONS (1)
  - Weight decreased [Recovered/Resolved]

NARRATIVE: CASE EVENT DATE: 20230902
